FAERS Safety Report 6556546-3 (Version None)
Quarter: 2010Q1

REPORT INFORMATION
  Report Type: 
  Country: None (occurrence: None)
  Receive Date: 20100128
  Receipt Date: 20100125
  Transmission Date: 20100710
  Serious: Yes (Death, Other)
  Sender: FDA-Public Use
  Company Number: US-PURDUE-USA-2010-0041888

PATIENT
  Age: 53 Year
  Sex: Male

DRUGS (2)
  1. OXYCODONE HYDROCHLORIDE [Suspect]
     Indication: DRUG ABUSE
  2. HYDROCODONE [Suspect]
     Indication: DRUG ABUSE

REACTIONS (3)
  - HEAD INJURY [None]
  - INJURY [None]
  - MULTIPLE DRUG OVERDOSE [None]
